FAERS Safety Report 13627271 (Version 1)
Quarter: 2017Q2

REPORT INFORMATION
  Report Type: Spontaneous
  Country: US (occurrence: US)
  Receive Date: 20170607
  Receipt Date: 20170607
  Transmission Date: 20170830
  Serious: Yes (Hospitalization, Disabling, Other)
  Sender: FDA-Public Use
  Company Number: None

PATIENT
  Age: 97 Year
  Sex: Male
  Weight: 67.5 kg

DRUGS (12)
  1. IMMOBILIZATION BOOTS [Concomitant]
  2. ENOXAPARIN [Concomitant]
     Active Substance: ENOXAPARIN
  3. DICLOFENAC SODIUM TOPICAL GEL [Concomitant]
  4. WHEELCHAIR [Concomitant]
     Active Substance: DEVICE
  5. LEVOFLOXACIN. [Suspect]
     Active Substance: LEVOFLOXACIN
     Indication: COUGH
     Dosage: ?          QUANTITY:1 TABLET(S);?DAILY ORAL
     Route: 048
     Dates: start: 20170331, end: 20170403
  6. SIMVASTATIN. [Concomitant]
     Active Substance: SIMVASTATIN
  7. ATENOLOL. [Concomitant]
     Active Substance: ATENOLOL
  8. GAIT BELT [Concomitant]
  9. TRIAMT/HCTZ [Concomitant]
     Active Substance: HYDROCHLOROTHIAZIDE\TRIAMTERENE
  10. TAMSULOSIN [Concomitant]
     Active Substance: TAMSULOSIN
  11. TRANSFER BOARD [Concomitant]
  12. BEDSIDE COMMODE [Concomitant]

REACTIONS (6)
  - Mobility decreased [None]
  - Impaired self-care [None]
  - Tendon rupture [None]
  - Emotional distress [None]
  - Back pain [None]
  - Loss of personal independence in daily activities [None]

NARRATIVE: CASE EVENT DATE: 20170409
